FAERS Safety Report 16999471 (Version 1)
Quarter: 2019Q4

REPORT INFORMATION
  Report Type: Spontaneous
  Country: US (occurrence: US)
  Receive Date: 20190925
  Receipt Date: 20190925
  Transmission Date: 20200122
  Serious: No
  Sender: FDA-Public Use
  Company Number: None

PATIENT
  Age: 27 Year
  Sex: Female

DRUGS (4)
  1. MUL [Concomitant]
  2. GLATIRAMER 40MG PFS INJ (12/BOX) [Suspect]
     Active Substance: GLATIRAMER
     Indication: MULTIPLE SCLEROSIS
     Route: 058
  3. ESC [Concomitant]
     Active Substance: ESCITALOPRAM OXALATE
  4. MIRENA [Concomitant]
     Active Substance: LEVONORGESTREL

REACTIONS (3)
  - Alopecia [None]
  - Injection site reaction [None]
  - Memory impairment [None]

NARRATIVE: CASE EVENT DATE: 20190925
